FAERS Safety Report 9882031 (Version 2)
Quarter: 2014Q2

REPORT INFORMATION
  Report Type: Spontaneous
  Country: US (occurrence: None)
  Receive Date: 20140205
  Receipt Date: 20140613
  Transmission Date: 20141212
  Serious: Yes (Hospitalization)
  Sender: FDA-Public Use
  Company Number: 1713747-2014-99906

PATIENT
  Age: 80 Year
  Sex: Female
  Weight: 60 kg

DRUGS (25)
  1. DELFLEX [Suspect]
     Indication: PERITONEAL DIALYSIS
  2. DELFLEX [Suspect]
     Indication: RENAL FAILURE CHRONIC
  3. LIBERTY CYCLER [Concomitant]
  4. LIBERTY CYCLER CASSETTE [Concomitant]
  5. AMITRIPTYLINE [Concomitant]
  6. LIPITOR [Concomitant]
  7. CALCITROL [Concomitant]
  8. CHOLECALCIFEROL [Concomitant]
  9. COLACE [Concomitant]
  10. ENULOSE [Concomitant]
  11. NARCO [Concomitant]
  12. SYNTHROID [Concomitant]
  13. LUTEIN [Concomitant]
  14. MITODRINE [Concomitant]
  15. PREMPRO [Concomitant]
  16. MIRALAX? [Concomitant]
  17. REQUIP [Concomitant]
  18. PROBIOTIC [Concomitant]
  19. SENASPAR [Concomitant]
  20. RENVELA [Concomitant]
  21. CARAFATE [Concomitant]
  22. TUMS [Concomitant]
  23. TYLENOL [Concomitant]
  24. ZOFRAM [Concomitant]
  25. ULTRAM [Concomitant]

REACTIONS (15)
  - Malnutrition [None]
  - Asthenia [None]
  - Confusional state [None]
  - Fall [None]
  - Joint injury [None]
  - Joint injury [None]
  - Head injury [None]
  - Blood pressure decreased [None]
  - Hypophagia [None]
  - Muscle spasms [None]
  - Hyponatraemia [None]
  - Haemodialysis complication [None]
  - Failure to thrive [None]
  - Weight decreased [None]
  - Encephalopathy [None]
